FAERS Safety Report 11213446 (Version 1)
Quarter: 2015Q2

REPORT INFORMATION
  Report Type: Spontaneous
  Country: None (occurrence: None)
  Receive Date: 20150622
  Receipt Date: 20150622
  Transmission Date: 20150821
  Serious: Yes (Life-Threatening, Hospitalization)
  Sender: FDA-Public Use
  Company Number: None

PATIENT
  Age: 22 Year
  Sex: Female
  Weight: 45.36 kg

DRUGS (1)
  1. NEXPLANON [Suspect]
     Active Substance: ETONOGESTREL

REACTIONS (9)
  - Migraine [None]
  - Cyst [None]
  - Mood swings [None]
  - Feeling abnormal [None]
  - Loss of consciousness [None]
  - Impaired work ability [None]
  - Post procedural haemorrhage [None]
  - Dysmenorrhoea [None]
  - Menstruation irregular [None]
